FAERS Safety Report 8036558-3 (Version None)
Quarter: 2012Q1

REPORT INFORMATION
  Report Type: 
  Country: None (occurrence: None)
  Receive Date: 20120109
  Receipt Date: 20111228
  Transmission Date: 20120608
  Serious: Yes (Other)
  Sender: FDA-Public Use
  Company Number: 2012P1000136

PATIENT
  Age: 24 Year
  Sex: Male

DRUGS (3)
  1. SERTRALINE HYDROCHLORIDE [Suspect]
     Indication: OBSESSIVE-COMPULSIVE DISORDER
     Dosage: 200 MG;QD
     Dates: start: 20040101, end: 20070101
  2. RISPERIDONE [Suspect]
     Indication: OBSESSIVE-COMPULSIVE DISORDER
     Dosage: 1 MG;QD ; 2 MG;QD
     Dates: start: 20040101, end: 20070101
  3. RISPERIDONE [Suspect]
     Indication: OBSESSIVE-COMPULSIVE DISORDER
     Dosage: 1 MG;QD ; 2 MG;QD
     Dates: start: 20040101, end: 20070101

REACTIONS (4)
  - TREATMENT NONCOMPLIANCE [None]
  - PRIAPISM [None]
  - CONDITION AGGRAVATED [None]
  - OBSESSIVE-COMPULSIVE DISORDER [None]
